FAERS Safety Report 7977868-5 (Version None)
Quarter: 2011Q4

REPORT INFORMATION
  Report Type: 
  Country: None (occurrence: None)
  Receive Date: 20111214
  Receipt Date: 20111202
  Transmission Date: 20120403
  Serious: No
  Sender: FDA-Public Use
  Company Number: US-AMGEN-USASP2011055366

PATIENT
  Age: 45 Year
  Sex: Female

DRUGS (1)
  1. ENBREL [Suspect]
     Indication: ANKYLOSING SPONDYLITIS
     Dosage: 50 MG, QWK
     Dates: start: 20111021

REACTIONS (6)
  - FEELING HOT [None]
  - SICK RELATIVE [None]
  - FATIGUE [None]
  - HOT FLUSH [None]
  - THERAPY REGIMEN CHANGED [None]
  - FEELING COLD [None]
